FAERS Safety Report 8928351 (Version 1)
Quarter: 2012Q4

REPORT INFORMATION
  Report Type: 
  Country: AU (occurrence: AU)
  Receive Date: 20121127
  Receipt Date: 20121127
  Transmission Date: 20130627
  Serious: Yes (Death)
  Sender: FDA-Public Use
  Company Number: AU-B.I. PHARMACEUTICALS,INC./RIDGEFIELD-2012-AU-01918AU

PATIENT
  Age: 10 None
  Sex: Male

DRUGS (3)
  1. PRADAXA [Suspect]
     Indication: CEREBROVASCULAR ACCIDENT PROPHYLAXIS
     Dates: start: 20110901, end: 2012
  2. PRADAXA [Suspect]
     Indication: ATRIAL FIBRILLATION
  3. NOT FURTHER SPECIFIED [Concomitant]

REACTIONS (1)
  - Death [Fatal]
